FAERS Safety Report 24164145 (Version 2)
Quarter: 2024Q3

REPORT INFORMATION
  Report Type: Report from Study
  Country: CN (occurrence: CN)
  Receive Date: 20240801
  Receipt Date: 20240805
  Transmission Date: 20241017
  Serious: Yes (Death, Life-Threatening, Hospitalization, Other)
  Sender: BAXTER
  Company Number: CN-BAXTER-2024BAX022167

PATIENT
  Age: 63 Year
  Sex: Female
  Weight: 39 kg

DRUGS (7)
  1. CYCLOPHOSPHAMIDE [Suspect]
     Active Substance: CYCLOPHOSPHAMIDE
     Indication: Diffuse large B-cell lymphoma stage IV
     Dosage: 937.5 MG, EVERY 3 WEEKS
     Route: 042
     Dates: start: 20240510
  2. DOXORUBICIN [Suspect]
     Active Substance: DOXORUBICIN
     Indication: Diffuse large B-cell lymphoma stage IV
     Dosage: 62.5 MG, EVERY 3 WEEKS
     Route: 042
     Dates: start: 20240510
  3. EPCORITAMAB [Suspect]
     Active Substance: EPCORITAMAB
     Indication: Diffuse large B-cell lymphoma stage IV
     Dosage: UNK, DRUG NOT ADMINISTERED
     Route: 065
  4. PREDNISONE [Suspect]
     Active Substance: PREDNISONE
     Indication: Diffuse large B-cell lymphoma stage IV
     Dosage: 100 MG C1-6, D1-5, EVERY 1 DAYS
     Route: 048
     Dates: start: 20240509
  5. RITUXIMAB [Suspect]
     Active Substance: RITUXIMAB
     Indication: Diffuse large B-cell lymphoma stage IV
     Dosage: 468.7 MG, EVERY 3 WEEKS
     Route: 042
     Dates: start: 20240509
  6. VINCRISTINE [Suspect]
     Active Substance: VINCRISTINE
     Indication: Diffuse large B-cell lymphoma stage IV
     Dosage: 1.75 MG, EVERY 3 WEEKS
     Route: 042
     Dates: start: 20240510
  7. ENTECAVIR [Concomitant]
     Active Substance: ENTECAVIR
     Indication: Antiviral prophylaxis
     Dosage: 0.5 MG EVERY EVENING, EVERY 1 DAYS
     Route: 065
     Dates: start: 20240506

REACTIONS (3)
  - Respiratory failure [Fatal]
  - Abdominal pain upper [Not Recovered/Not Resolved]
  - Respiratory failure [Not Recovered/Not Resolved]

NARRATIVE: CASE EVENT DATE: 20240628
